FAERS Safety Report 6104705-6 (Version None)
Quarter: 2009Q1

REPORT INFORMATION
  Report Type: 
  Country: None (occurrence: None)
  Receive Date: 20090302
  Receipt Date: 20090219
  Transmission Date: 20090719
  Serious: Yes (Hospitalization)
  Sender: FDA-Public Use
  Company Number: 2008AL011388

PATIENT
  Age: 96 Year
  Sex: Female
  Weight: 50.8029 kg

DRUGS (11)
  1. DIGOXIN [Suspect]
     Indication: ATRIAL FIBRILLATION
     Dosage: 0.25MG, DAILY, PO
     Route: 048
     Dates: start: 20071031, end: 20071107
  2. SYNTHROID [Concomitant]
  3. CERTUSS [Concomitant]
  4. LISINOPRIL [Concomitant]
  5. POTASSIUM CHLORIDE [Concomitant]
  6. LASIX [Concomitant]
  7. ACETAMINOPHEN [Concomitant]
  8. WARFARIN [Concomitant]
  9. METOPROLOL TARTRATE [Concomitant]
  10. FISH OIL [Concomitant]
  11. MULTI-VITAMINS [Concomitant]

REACTIONS (12)
  - ATRIAL FIBRILLATION [None]
  - CARDIAC DISORDER [None]
  - COGNITIVE DISORDER [None]
  - CONDITION AGGRAVATED [None]
  - COUGH [None]
  - EATING DISORDER [None]
  - HEART RATE DECREASED [None]
  - HYPERTENSION [None]
  - MYOCARDIAL INFARCTION [None]
  - NAUSEA [None]
  - THERAPEUTIC AGENT TOXICITY [None]
  - VOMITING [None]
